FAERS Safety Report 5728944-9 (Version None)
Quarter: 2008Q2

REPORT INFORMATION
  Report Type: 
  Country: None (occurrence: None)
  Receive Date: 20080505
  Receipt Date: 20080505
  Transmission Date: 20081010
  Serious: No
  Sender: FDA-Public Use
  Company Number: None

PATIENT

DRUGS (1)
  1. AMBISOME [Suspect]
     Dosage: INJECTABLE

REACTIONS (6)
  - ACCIDENTAL EXPOSURE [None]
  - CHEST DISCOMFORT [None]
  - FLUSHING [None]
  - HYPERSENSITIVITY [None]
  - MEDICATION ERROR [None]
  - NAUSEA [None]
